FAERS Safety Report 4876346-X (Version None)
Quarter: 2006Q1

REPORT INFORMATION
  Report Type: 
  Country: None (occurrence: None)
  Receive Date: 20060106
  Receipt Date: 20051223
  Transmission Date: 20060701
  Serious: Yes (Death)
  Sender: FDA-Public Use
  Company Number: B0405136A

PATIENT
  Age: 28 Year
  Sex: Female

DRUGS (3)
  1. RETROVIR [Suspect]
     Indication: HIV INFECTION
     Dates: start: 19990801
  2. EPIVIR [Suspect]
     Indication: HIV INFECTION
  3. INDINAVIR SULFATE (FORMULATION UNKNOWN) (INDINAVIR SULFATE) [Suspect]
     Indication: HIV INFECTION
     Dates: start: 19990801

REACTIONS (8)
  - CRYPTOCOCCOSIS [None]
  - GENERAL PHYSICAL HEALTH DETERIORATION [None]
  - HEADACHE [None]
  - IMMUNE RECONSTITUTION SYNDROME [None]
  - INTRACRANIAL PRESSURE INCREASED [None]
  - MALAISE [None]
  - MENINGITIS CRYPTOCOCCAL [None]
  - PYREXIA [None]
